FAERS Safety Report 9632445 (Version 2)
Quarter: 2014Q2

REPORT INFORMATION
  Report Type: Spontaneous
  Country: CN (occurrence: CN)
  Receive Date: 20131018
  Receipt Date: 20140515
  Transmission Date: 20141212
  Serious: Yes (Other)
  Sender: FDA-Public Use
  Company Number: PHHY2013CN116564

PATIENT
  Age: 55 Year
  Sex: Female
  Weight: 64 kg

DRUGS (2)
  1. SANDIMMUN NEORAL / OL [Suspect]
     Indication: RENAL TRANSPLANT
     Dosage: 25 MG, QD
     Route: 048
     Dates: start: 20050827, end: 20131025
  2. CELLCEPT [Concomitant]
     Indication: RENAL TRANSPLANT
     Dosage: 500 MG, EACH TIME
     Route: 048
     Dates: start: 20130827, end: 20131025

REACTIONS (3)
  - Arteriosclerosis [Not Recovered/Not Resolved]
  - Concomitant disease aggravated [Not Recovered/Not Resolved]
  - Contusion [Unknown]
